FAERS Safety Report 18444260 (Version 1)
Quarter: 2020Q4

REPORT INFORMATION
  Report Type: Spontaneous
  Country: FR (occurrence: FR)
  Receive Date: 20201030
  Receipt Date: 20201030
  Transmission Date: 20210114
  Serious: Yes (Other)
  Sender: FDA-Public Use
  Company Number: FR-TEVA-2020-FR-1842736

PATIENT
  Age: 71 Year
  Sex: Male
  Weight: 79 kg

DRUGS (1)
  1. OXALIPLATIN. [Suspect]
     Active Substance: OXALIPLATIN
     Indication: PRODUCT USED FOR UNKNOWN INDICATION
     Dosage: ADMINISTERED ON 19-OCT-2020 OR 20-OCT-2020 165 UNITS (NOT SPECIFIED) OF OXALIPLATIN
     Route: 042
     Dates: start: 202010, end: 202010

REACTIONS (4)
  - Dyspnoea [Recovered/Resolved]
  - Throat tightness [Recovered/Resolved]
  - Trismus [Recovered/Resolved]
  - Extremity contracture [Recovered/Resolved]

NARRATIVE: CASE EVENT DATE: 202010
